FAERS Safety Report 7796623-2 (Version None)
Quarter: 2011Q3

REPORT INFORMATION
  Report Type: 
  Country: None (occurrence: None)
  Receive Date: 20110929
  Receipt Date: 20110917
  Transmission Date: 20111222
  Serious: Yes (Other)
  Sender: FDA-Public Use
  Company Number: 2011SP044083

PATIENT
  Sex: Male

DRUGS (2)
  1. PEG-INTRON [Suspect]
     Indication: HEPATITIS C
     Dates: start: 20110301
  2. RIBAVIRIN [Suspect]
     Indication: HEPATITIS C
     Dates: start: 20110301

REACTIONS (4)
  - BRONCHIECTASIS [None]
  - PNEUMONIA [None]
  - TONGUE ULCERATION [None]
  - RASH [None]
